FAERS Safety Report 16300245 (Version 1)
Quarter: 2019Q2

REPORT INFORMATION
  Report Type: Spontaneous
  Country: US (occurrence: US)
  Receive Date: 20190510
  Receipt Date: 20190510
  Transmission Date: 20190711
  Serious: Yes (Other)
  Sender: FDA-Public Use
  Company Number: PHEH2019US020320

PATIENT
  Sex: Male

DRUGS (1)
  1. TASIGNA [Suspect]
     Active Substance: NILOTINIB
     Indication: CHRONIC MYELOID LEUKAEMIA
     Dosage: 01 DF, BID
     Route: 048
     Dates: start: 20080828

REACTIONS (16)
  - Chest pain [Unknown]
  - Syncope [Unknown]
  - Musculoskeletal pain [Unknown]
  - Fatigue [Unknown]
  - Mitral valve incompetence [Unknown]
  - Tricuspid valve incompetence [Unknown]
  - Cardiomyopathy [Unknown]
  - Cardiac failure congestive [Unknown]
  - Coronary artery disease [Unknown]
  - Pancreatitis [Unknown]
  - Asthenia [Unknown]
  - Bundle branch block right [Unknown]
  - Palpitations [Unknown]
  - Lipoma [Unknown]
  - Back pain [Unknown]
  - Dyspnoea [Unknown]
